FAERS Safety Report 4852593-8 (Version None)
Quarter: 2005Q4

REPORT INFORMATION
  Report Type: 
  Country: None (occurrence: None)
  Receive Date: 20051125
  Receipt Date: 20050819
  Transmission Date: 20060501
  Serious: Yes (Other)
  Sender: FDA-Public Use
  Company Number: 2005099617

PATIENT
  Sex: Male
  Weight: 87.0906 kg

DRUGS (7)
  1. TIKOSYN [Suspect]
     Indication: ATRIAL FIBRILLATION
     Dosage: 10 MG (5 MG, BID INTERVAL: DAILY), ORAL
     Route: 048
     Dates: start: 20040101
  2. MAGNESIUM (MAGNESIUM) [Concomitant]
  3. METFORMIN HCL [Concomitant]
  4. COZAAR [Concomitant]
  5. PRAVACHOL [Concomitant]
  6. POTASSIUM (POTASSIUM) [Concomitant]
  7. COUMADIN [Concomitant]

REACTIONS (2)
  - ATRIAL FIBRILLATION [None]
  - ELECTROCARDIOGRAM QT PROLONGED [None]
